FAERS Safety Report 23798885 (Version 8)
Quarter: 2024Q3

REPORT INFORMATION
  Report Type: Spontaneous
  Country: AT (occurrence: AT)
  Receive Date: 20240430
  Receipt Date: 20240904
  Transmission Date: 20241017
  Serious: No
  Sender: PFIZER
  Company Number: AT-PFIZER INC-PV202400054445

PATIENT
  Age: 10 Year
  Sex: Female

DRUGS (1)
  1. GENOTROPIN [Suspect]
     Active Substance: SOMATROPIN
     Dosage: UNK

REACTIONS (5)
  - Device use error [Unknown]
  - Device breakage [Unknown]
  - Device mechanical issue [Unknown]
  - Poor quality device used [Unknown]
  - Expired device used [Unknown]
